FAERS Safety Report 12172843 (Version 1)
Quarter: 2016Q1

REPORT INFORMATION
  Report Type: Spontaneous
  Country: US (occurrence: US)
  Receive Date: 20160311
  Receipt Date: 20160311
  Transmission Date: 20160526
  Serious: No
  Sender: FDA-Public Use
  Company Number: US-PFIZER INC-2016091988

PATIENT
  Age: 73 Year
  Sex: Female

DRUGS (3)
  1. MEPERIDINE [Suspect]
     Active Substance: MEPERIDINE
     Dosage: UNK
  2. NIACIN. [Suspect]
     Active Substance: NIACIN
     Dosage: UNK
  3. BENZYLPENICILLIN POTASSIUM [Suspect]
     Active Substance: PENICILLIN G POTASSIUM
     Dosage: UNK

REACTIONS (1)
  - Drug hypersensitivity [Unknown]
